FAERS Safety Report 24528231 (Version 1)
Quarter: 2024Q4

REPORT INFORMATION
  Report Type: Spontaneous
  Country: US (occurrence: None)
  Receive Date: 20241018
  Receipt Date: 20241018
  Transmission Date: 20250115
  Serious: Yes (Death)
  Sender: Public
  Company Number: None

PATIENT
  Age: 92 Year
  Sex: Male

DRUGS (18)
  1. ESBRIET [Suspect]
     Active Substance: PIRFENIDONE
     Indication: Idiopathic pulmonary fibrosis
     Dosage: FREQUENCY : TWICE A DAY;?
     Route: 048
     Dates: start: 20151203, end: 20230630
  2. SERTRALINE [Concomitant]
     Active Substance: SERTRALINE HYDROCHLORIDE
  3. PREDNISONE [Concomitant]
     Active Substance: PREDNISONE
  4. ALBUTEROL HFA [Concomitant]
  5. MIRTAZAPINE [Concomitant]
  6. PREDNISONE [Concomitant]
  7. ALBUTEROL HFA [Concomitant]
  8. MIRTAZAPINE [Concomitant]
  9. ATORVASTATIN [Concomitant]
  10. FINASTERIDE [Concomitant]
  11. LEVOTHYROXINE [Concomitant]
  12. LACTULOSE [Concomitant]
  13. psyllium oral powder [Concomitant]
  14. MIRALAX [Concomitant]
  15. SENNOSIDES [Concomitant]
  16. METOPROLOL [Concomitant]
  17. lidocaine patch [Concomitant]
  18. TERAZOSIN [Concomitant]

REACTIONS (4)
  - General physical health deterioration [None]
  - Weight decreased [None]
  - Diet refusal [None]
  - Vomiting [None]

NARRATIVE: CASE EVENT DATE: 20230130
